FAERS Safety Report 5819765-7 (Version None)
Quarter: 2008Q3

REPORT INFORMATION
  Report Type: 
  Country: None (occurrence: None)
  Receive Date: 20080718
  Receipt Date: 20080709
  Transmission Date: 20090109
  Serious: Yes (Death)
  Sender: FDA-Public Use
  Company Number: ADE2008-0248

PATIENT
  Age: 64 Year
  Sex: Female

DRUGS (2)
  1. SERTRALINE [Suspect]
  2. DIAZEPAM [Suspect]

REACTIONS (3)
  - DROWNING [None]
  - DRUG LEVEL DECREASED [None]
  - OVERDOSE [None]
